FAERS Safety Report 6346905-6 (Version None)
Quarter: 2009Q3

REPORT INFORMATION
  Report Type: 
  Country: None (occurrence: None)
  Receive Date: 20090909
  Receipt Date: 20090909
  Transmission Date: 20100115
  Serious: Yes (Hospitalization)
  Sender: FDA-Public Use
  Company Number: None

PATIENT
  Age: 74 Year
  Sex: Female
  Weight: 66 kg

DRUGS (10)
  1. DIGOXIN [Suspect]
     Indication: ATRIAL FIBRILLATION
     Dosage: 250 MCG DAILY PO PRIOR ADMISSION
     Route: 048
  2. ANASTROZOLE [Concomitant]
  3. SIMVASTATIN [Concomitant]
  4. FUROSEMIDE [Concomitant]
  5. DILTIAZEM CD [Concomitant]
  6. POTASSIUM CHLORIDE [Concomitant]
  7. POLYETHYLENE GLYCOL 3350 [Concomitant]
  8. CARVEDILOL [Concomitant]
  9. MORPHINE [Concomitant]
  10. WARFARIN SODIUM [Concomitant]

REACTIONS (6)
  - ABDOMINAL PAIN [None]
  - CARDIOACTIVE DRUG LEVEL INCREASED [None]
  - DYSPNOEA [None]
  - NAUSEA [None]
  - VOMITING [None]
  - XANTHOPSIA [None]
